FAERS Safety Report 8958734 (Version 1)
Quarter: 2012Q4

REPORT INFORMATION
  Report Type: Spontaneous
  Country: US (occurrence: None)
  Receive Date: 20121206
  Receipt Date: 20121206
  Transmission Date: 20130627
  Serious: Yes (Life-Threatening)
  Sender: FDA-Public Use
  Company Number: None

PATIENT
  Age: 70 Year
  Sex: Male
  Weight: 53.2 kg

DRUGS (1)
  1. HEPARIN [Suspect]
     Indication: DVT PROPHYLAXIS
     Dosage: 900 UNITS PER HOUR
     Route: 042
     Dates: start: 20120816, end: 20120831

REACTIONS (3)
  - Respiratory distress [None]
  - Cardio-respiratory arrest [None]
  - Respiratory tract haemorrhage [None]
